FAERS Safety Report 9010595 (Version 2)
Quarter: 2013Q1

REPORT INFORMATION
  Report Type: Spontaneous
  Country: BR (occurrence: BR)
  Receive Date: 20130109
  Receipt Date: 20130118
  Transmission Date: 20140127
  Serious: Yes (Death, Other)
  Sender: FDA-Public Use
  Company Number: BR-JNJFOC-20130103004

PATIENT
  Age: 21 Year
  Sex: Female

DRUGS (1)
  1. TOPAMAX [Suspect]
     Indication: PRODUCT USED FOR UNKNOWN INDICATION
     Route: 048
     Dates: start: 20121202

REACTIONS (5)
  - Completed suicide [Fatal]
  - Hallucination, auditory [Unknown]
  - Visual impairment [Unknown]
  - Cognitive disorder [Unknown]
  - Abnormal behaviour [Unknown]
